FAERS Safety Report 7638914-1 (Version None)
Quarter: 2011Q3

REPORT INFORMATION
  Report Type: 
  Country: None (occurrence: None)
  Receive Date: 20110727
  Receipt Date: 20110722
  Transmission Date: 20111222
  Serious: Yes (Hospitalization)
  Sender: FDA-Public Use
  Company Number: FR-TEVA-283152ISR

PATIENT
  Sex: Female
  Weight: 65 kg

DRUGS (12)
  1. DEXAMETHASONE [Suspect]
     Dosage: 20 MILLIGRAM;
     Dates: start: 20110411, end: 20110502
  2. LENALIDOMIDE [Suspect]
     Dosage: 25 MILLIGRAM;
     Route: 048
     Dates: start: 20110509
  3. LENALIDOMIDE [Suspect]
     Dosage: 25 MILLIGRAM;
     Route: 048
     Dates: start: 20110411, end: 20110501
  4. ASPIRIN [Concomitant]
     Indication: THROMBOSIS PROPHYLAXIS
     Dosage: 75 MILLIGRAM;
     Route: 048
     Dates: start: 20070101
  5. LENALIDOMIDE [Suspect]
     Indication: MULTIPLE MYELOMA
     Dosage: 25 MILLIGRAM;
     Route: 048
     Dates: start: 20100802
  6. DEXAMETHASONE [Suspect]
     Indication: MULTIPLE MYELOMA
     Dosage: 40 MILLIGRAM;
     Dates: start: 20100802
  7. DEXAMETHASONE [Suspect]
     Dosage: 20 MILLIGRAM;
     Dates: start: 20110509
  8. ATACAND [Concomitant]
     Indication: BLOOD PRESSURE
  9. ATORVASTATIN CALCIUM [Concomitant]
  10. JANUMET [Concomitant]
     Dosage: UNIT DOSE: 50/100 MG
  11. ACEBUTOLOL [Concomitant]
     Indication: BLOOD PRESSURE
  12. NEXIUM [Concomitant]

REACTIONS (2)
  - BRONCHITIS [None]
  - DIARRHOEA [None]
